FAERS Safety Report 9377298 (Version 2)
Quarter: 2013Q3

REPORT INFORMATION
  Report Type: Report from Study
  Country: FR (occurrence: FR)
  Receive Date: 20130701
  Receipt Date: 20130719
  Transmission Date: 20140515
  Serious: Yes (Hospitalization)
  Sender: FDA-Public Use
  Company Number: FR-ROCHE-1238175

PATIENT
  Age: 80 Year
  Sex: Male
  Weight: 60 kg

DRUGS (4)
  1. RITUXIMAB [Suspect]
     Indication: DIFFUSE LARGE B-CELL LYMPHOMA
     Dosage: CUMULATIVE DOSE 1300MG,ON 15/JUL/2011, HE RECEIVED THE LAST DOSE OF RITUXIMAB, PRIOR TO THE ONSET OF
     Route: 042
     Dates: start: 20110621
  2. VINCRISTINE [Suspect]
     Indication: DIFFUSE LARGE B-CELL LYMPHOMA
     Dosage: ON 15/JUL/2011, HE RECEIVED THE LAST DOSE , VINCRISTINE PRIOR TO THE ONSET OF SAE. CUMULATIVE DOSE:
     Route: 042
     Dates: start: 20110621
  3. PREDNISONE [Suspect]
     Indication: DIFFUSE LARGE B-CELL LYMPHOMA
     Dosage: ON 15/JUL/2011, HE RECEIVED THE LAST DOSE OF,PREDNISONE PRIOR TO THE ONSET OF SAE., CUMULATIVE DOSE
     Route: 048
     Dates: start: 20110621
  4. ENDOXAN [Suspect]
     Indication: DIFFUSE LARGE B-CELL LYMPHOMA
     Dosage: ON 15/JUL/2011, HE RECEIVED THE LAST DOSE OF , CYCLOPHOSPHAMIDE, PRIOR TO THE ONSET OF SAE. CUMULATI
     Route: 042
     Dates: start: 20110621

REACTIONS (4)
  - Blood urine present [Recovered/Resolved]
  - Bone marrow failure [Recovered/Resolved]
  - Lung disorder [Recovered/Resolved]
  - Ventricular tachycardia [Recovered/Resolved]
